FAERS Safety Report 25312361 (Version 2)
Quarter: 2025Q3

REPORT INFORMATION
  Report Type: Report from Study
  Country: US (occurrence: US)
  Receive Date: 20250514
  Receipt Date: 20250714
  Transmission Date: 20251020
  Serious: Yes (Life-Threatening, Other)
  Sender: NOVARTIS
  Company Number: US-002147023-NVSC2025US077065

PATIENT
  Sex: Female

DRUGS (1)
  1. KESIMPTA [Suspect]
     Active Substance: OFATUMUMAB
     Indication: Relapsing multiple sclerosis
     Route: 058

REACTIONS (7)
  - Near death experience [Unknown]
  - Chills [Unknown]
  - Anxiety [Unknown]
  - Heart rate increased [Unknown]
  - Influenza like illness [Unknown]
  - Fear of injection [Unknown]
  - Feeling abnormal [Unknown]
